FAERS Safety Report 15411154 (Version 4)
Quarter: 2019Q4

REPORT INFORMATION
  Report Type: Spontaneous
  Country: US (occurrence: US)
  Receive Date: 20180921
  Receipt Date: 20191126
  Transmission Date: 20200122
  Serious: No
  Sender: FDA-Public Use
  Company Number: US-PFIZER INC-2018382677

PATIENT
  Age: 73 Year
  Sex: Female

DRUGS (3)
  1. NEURONTIN [Suspect]
     Active Substance: GABAPENTIN
     Indication: SCIATICA
     Dosage: 600 MG, 4X/DAY (2 CAPSULES 4 TIMES A DAY/ 300MG CAPSULES, UP TO 8 A DAY)
  2. NEURONTIN [Suspect]
     Active Substance: GABAPENTIN
     Indication: ABDOMINAL PAIN LOWER
  3. NEURONTIN [Suspect]
     Active Substance: GABAPENTIN
     Indication: PAIN
     Dosage: UNK, 4X/DAY (TAKE ONE TO TWO CAPSULE)
     Route: 048

REACTIONS (7)
  - Fatigue [Unknown]
  - Product use in unapproved indication [Unknown]
  - Tenderness [Unknown]
  - Spinal pain [Unknown]
  - Blood pressure increased [Unknown]
  - Off label use [Unknown]
  - Feeling abnormal [Unknown]
